FAERS Safety Report 7728410-5 (Version None)
Quarter: 2011Q3

REPORT INFORMATION
  Report Type: 
  Country: None (occurrence: None)
  Receive Date: 20110905
  Receipt Date: 20110826
  Transmission Date: 20111222
  Serious: Yes (Other)
  Sender: FDA-Public Use
  Company Number: PHEH2011US02766

PATIENT
  Sex: Female

DRUGS (1)
  1. GILENYA [Suspect]
     Indication: MULTIPLE SCLEROSIS
     Dosage: 0.5 MG, QD
     Route: 048
     Dates: start: 20110825

REACTIONS (5)
  - ABDOMINAL PAIN [None]
  - HEART RATE DECREASED [None]
  - NAUSEA [None]
  - DIZZINESS [None]
  - PRESYNCOPE [None]
